FAERS Safety Report 15707157 (Version 2)
Quarter: 2018Q4

REPORT INFORMATION
  Report Type: Spontaneous
  Country: DE (occurrence: DE)
  Receive Date: 20181210
  Receipt Date: 20181219
  Transmission Date: 20190205
  Serious: Yes (Hospitalization)
  Sender: FDA-Public Use
  Company Number: PHHY2018DE176781

PATIENT
  Age: 75 Year
  Sex: Male
  Weight: 62 kg

DRUGS (8)
  1. FLUOROURACIL. [Suspect]
     Active Substance: FLUOROURACIL
     Indication: RECTAL CANCER
     Dosage: 4422 MG, QCY
     Route: 042
     Dates: start: 20180716, end: 20180716
  2. FOLINIC ACID [Suspect]
     Active Substance: LEUCOVORIN
     Indication: RECTAL CANCER
     Dosage: UNK UNK, QCY
     Route: 042
     Dates: start: 20180716, end: 20180716
  3. AFLIBERCEPT [Suspect]
     Active Substance: AFLIBERCEPT
     Indication: RECTAL CANCER
     Dosage: UNK, QCY
     Route: 042
     Dates: start: 20180716, end: 20180716
  4. FOLINIC ACID [Suspect]
     Active Substance: LEUCOVORIN
     Dosage: 730 MG, QCY
     Route: 042
     Dates: start: 20180924, end: 20180924
  5. FLUOROURACIL. [Suspect]
     Active Substance: FLUOROURACIL
     Dosage: 4422 MG, QCY
     Route: 042
     Dates: start: 20180924, end: 20180924
  6. OXALIPLATIN. [Suspect]
     Active Substance: OXALIPLATIN
     Indication: RECTAL CANCER
     Dosage: UNK MG, QCY
     Route: 042
     Dates: start: 20180716, end: 20180716
  7. OXALIPLATIN. [Suspect]
     Active Substance: OXALIPLATIN
     Dosage: 180 MG, QCY
     Route: 042
     Dates: start: 20180924, end: 20180924
  8. AFLIBERCEPT [Suspect]
     Active Substance: AFLIBERCEPT
     Dosage: 295 MG, QCY
     Route: 042
     Dates: start: 20180827, end: 20180827

REACTIONS (1)
  - Blood potassium increased [Recovered/Resolved]

NARRATIVE: CASE EVENT DATE: 20181115
